FAERS Safety Report 5943494-2 (Version None)
Quarter: 2008Q4

REPORT INFORMATION
  Report Type: 
  Country: None (occurrence: None)
  Receive Date: 20081106
  Receipt Date: 20081030
  Transmission Date: 20090506
  Serious: Yes (Other)
  Sender: FDA-Public Use
  Company Number: US-WYE-H06622708

PATIENT
  Sex: Male
  Weight: 97.16 kg

DRUGS (3)
  1. MYLOTARG [Suspect]
     Indication: ACUTE MYELOID LEUKAEMIA
     Dosage: UNKNOWN
     Route: 042
     Dates: start: 20081028
  2. ZOFRAN [Concomitant]
     Indication: DRUG USE FOR UNKNOWN INDICATION
     Dosage: UNKNOWN DOSE GIVEN BEFORE INFUSION
     Route: 065
     Dates: start: 20081001
  3. BENADRYL [Concomitant]
     Indication: DRUG USE FOR UNKNOWN INDICATION
     Dosage: UNKNOWN DOSE GIVEN BEFORE INFUSION
     Route: 065
     Dates: start: 20081001

REACTIONS (2)
  - ARTHRALGIA [None]
  - BACK PAIN [None]
